FAERS Safety Report 4836317-6 (Version None)
Quarter: 2005Q4

REPORT INFORMATION
  Report Type: 
  Country: None (occurrence: None)
  Receive Date: 20051121
  Receipt Date: 20051121
  Transmission Date: 20060501
  Serious: Yes (Hospitalization, Congenital Anomaly)
  Sender: FDA-Public Use
  Company Number: None

PATIENT
  Age: 33 Year
  Sex: Female
  Weight: 57.1532 kg

DRUGS (3)
  1. PRENATAL-U       CYPRESS PHARMACEUTICAL,  INC. [Suspect]
     Indication: PREGNANCY
     Dosage: 1 CAPSULE  PER DAY  PO
     Route: 048
     Dates: start: 20051017, end: 20051109
  2. PRENATAL-U         CYPRESS PHARMACEUTICAL, INC. [Suspect]
  3. CENOGEN ULTRA CAPSULES [Concomitant]

REACTIONS (3)
  - FOETAL GROWTH RETARDATION [None]
  - HAEMORRHAGE [None]
  - MATERNAL DRUGS AFFECTING FOETUS [None]
